FAERS Safety Report 5372813-3 (Version None)
Quarter: 2007Q2

REPORT INFORMATION
  Report Type: 
  Country: None (occurrence: None)
  Receive Date: 20070627
  Receipt Date: 20070620
  Transmission Date: 20071010
  Serious: Yes (Hospitalization)
  Sender: FDA-Public Use
  Company Number: SE-PFIZER INC-2007050205

PATIENT
  Sex: Male

DRUGS (1)
  1. XANOR [Suspect]
     Indication: DEPRESSION
     Dosage: TEXT:TDD:50 TABLETS
     Route: 048
     Dates: start: 20060729, end: 20060729

REACTIONS (4)
  - DRUG TOXICITY [None]
  - HYPOTHERMIA [None]
  - LOSS OF CONSCIOUSNESS [None]
  - OVERDOSE [None]
